FAERS Safety Report 5159048-4 (Version None)
Quarter: 2006Q4

REPORT INFORMATION
  Report Type: 
  Country: None (occurrence: None)
  Receive Date: 20061117
  Receipt Date: 20061025
  Transmission Date: 20070319
  Serious: Yes (Other)
  Sender: FDA-Public Use
  Company Number: 2006136290

PATIENT
  Sex: Female

DRUGS (3)
  1. CELEBREX [Suspect]
     Dosage: ORAL
     Route: 048
  2. BEXTRA [Suspect]
     Dosage: ORAL
     Route: 048
  3. VIOXX [Suspect]
     Dosage: ORAL
     Route: 048
     Dates: start: 20010919

REACTIONS (3)
  - CARDIOVASCULAR DISORDER [None]
  - INJURY [None]
  - MYOCARDIAL INFARCTION [None]
